FAERS Safety Report 9838571 (Version 1)
Quarter: 2014Q1

REPORT INFORMATION
  Report Type: Spontaneous
  Country: US (occurrence: US)
  Receive Date: 20140123
  Receipt Date: 20140123
  Transmission Date: 20141002
  Serious: Yes (Hospitalization, Other)
  Sender: FDA-Public Use
  Company Number: US-PFIZER INC-2014021259

PATIENT
  Age: 68 Year
  Sex: Female
  Weight: 106 kg

DRUGS (4)
  1. LYRICA [Suspect]
     Indication: SPINAL PAIN
     Dosage: 150 MG, 2X/DAY
     Route: 048
  2. LEVOTHYROXINE [Concomitant]
     Indication: THYROIDECTOMY
     Dosage: UNK
  3. HYDROCODONE [Concomitant]
     Indication: PAIN
     Dosage: UNK
  4. MORPHINE [Concomitant]
     Indication: PAIN
     Dosage: UNK

REACTIONS (1)
  - Pneumonia [Recovering/Resolving]
